FAERS Safety Report 5158955-6 (Version None)
Quarter: 2006Q4

REPORT INFORMATION
  Report Type: 
  Country: None (occurrence: None)
  Receive Date: 20061128
  Receipt Date: 20061002
  Transmission Date: 20070319
  Serious: Yes (Death, Hospitalization)
  Sender: FDA-Public Use
  Company Number: US-BRISTOL-MYERS SQUIBB COMPANY-13529417

PATIENT
  Age: 79 Year
  Sex: Male

DRUGS (14)
  1. CETUXIMAB [Suspect]
     Indication: NON-SMALL CELL LUNG CANCER
     Route: 042
     Dates: start: 20051130, end: 20060920
  2. CYANOCOBALAMIN [Concomitant]
  3. DORZOLAMIDE HCL TIMOLOL MALEATE [Concomitant]
     Route: 047
     Dates: start: 20061002, end: 20061004
  4. BRIMONIDINE TARTRATE [Concomitant]
     Route: 047
     Dates: start: 20061002, end: 20061004
  5. CLINDAMYCIN HCL [Concomitant]
     Route: 048
  6. CLINDAMYCIN PHOSPHATE [Concomitant]
     Route: 061
  7. BISACODYL [Concomitant]
     Dates: start: 20061002, end: 20061003
  8. ONDANSETRON [Concomitant]
     Route: 048
     Dates: start: 20061002, end: 20061003
  9. LOPERAMIDE [Concomitant]
  10. PROCHLORPERAZINE [Concomitant]
     Dates: start: 20061002, end: 20061003
  11. LACTOBACILLUS [Concomitant]
     Route: 048
     Dates: start: 20061003
  12. DIPHENHYDRAMINE HCL [Concomitant]
     Route: 048
     Dates: start: 20061003
  13. ACETAMINOPHEN [Concomitant]
     Dates: start: 20061002, end: 20061003
  14. HEPARIN [Concomitant]
     Dates: start: 20061002, end: 20061004

REACTIONS (2)
  - ABDOMINAL DISTENSION [None]
  - CARDIAC ARREST [None]
